FAERS Safety Report 6939193-0 (Version None)
Quarter: 2010Q3

REPORT INFORMATION
  Report Type: 
  Country: None (occurrence: None)
  Receive Date: 20100824
  Receipt Date: 20100819
  Transmission Date: 20110219
  Serious: Yes (Other)
  Sender: FDA-Public Use
  Company Number: US-BRISTOL-MYERS SQUIBB COMPANY-15247182

PATIENT

DRUGS (1)
  1. ORENCIA [Suspect]

REACTIONS (1)
  - TOXOPLASMOSIS [None]
